FAERS Safety Report 7292258-9 (Version None)
Quarter: 2010Q4

REPORT INFORMATION
  Report Type: 
  Country: None (occurrence: None)
  Receive Date: 20101223
  Receipt Date: 20091123
  Transmission Date: 20110411
  Serious: Yes (Other)
  Sender: FDA-Public Use
  Company Number: FEI2009-2417

PATIENT
  Age: 28 Year
  Sex: Female
  Weight: 90.7194 kg

DRUGS (3)
  1. PARAGARD T 380A [Suspect]
     Indication: CONTRACEPTION
     Dosage: I.U.
     Dates: start: 20071213, end: 20090904
  2. ZYRTEC [Concomitant]
  3. UNSPECIFIED VITAMINS [Concomitant]

REACTIONS (4)
  - DEVICE DISLOCATION [None]
  - DEVICE EXPULSION [None]
  - METRORRHAGIA [None]
  - VAGINAL HAEMORRHAGE [None]
